FAERS Safety Report 5484787-5 (Version None)
Quarter: 2007Q4

REPORT INFORMATION
  Report Type: 
  Country: None (occurrence: None)
  Receive Date: 20071010
  Receipt Date: 20070926
  Transmission Date: 20080405
  Serious: Yes (Life-Threatening, Other)
  Sender: FDA-Public Use
  Company Number: 2007US001395

PATIENT
  Age: 90 Year
  Sex: Male

DRUGS (5)
  1. AMBISOME [Suspect]
     Indication: MENINGITIS CRYPTOCOCCAL
     Dosage: 150 MG, UID/QD, IV DRIP
     Route: 041
     Dates: start: 20070516, end: 20070529
  2. UNASYN [Concomitant]
  3. PRODIF [Concomitant]
  4. FIRSTCIN (CEFOZOPRAN HYDROCHLORIDE) [Concomitant]
  5. DIFLUCAN [Concomitant]

REACTIONS (8)
  - BLOOD CHLORIDE DECREASED [None]
  - BLOOD SODIUM DECREASED [None]
  - DEHYDRATION [None]
  - HYPOALBUMINAEMIA [None]
  - HYPOKALAEMIA [None]
  - OEDEMA [None]
  - PNEUMONIA [None]
  - URINE OUTPUT INCREASED [None]
